FAERS Safety Report 14163616 (Version 1)
Quarter: 2017Q4

REPORT INFORMATION
  Report Type: Spontaneous
  Country: US (occurrence: US)
  Receive Date: 20171106
  Receipt Date: 20171106
  Transmission Date: 20180321
  Serious: No
  Sender: FDA-Public Use
  Company Number: US-B.I. PHARMACEUTICALS,INC./RIDGEFIELD-2017-BI-058712

PATIENT
  Age: 56 Year
  Sex: Female

DRUGS (2)
  1. COMBIVENT [Suspect]
     Active Substance: ALBUTEROL SULFATE\IPRATROPIUM BROMIDE
     Indication: ASTHMA
     Dosage: FORM STRENGTH: 18 MCG /103 MCG; ADMINISTRATION CORRECT? NO ACTION TAKEN WITH PRODUCT: DRUG WITHDRAWN
     Route: 065
     Dates: start: 2007, end: 2015
  2. COMBIVENT [Suspect]
     Active Substance: ALBUTEROL SULFATE\IPRATROPIUM BROMIDE
     Indication: CHRONIC OBSTRUCTIVE PULMONARY DISEASE

REACTIONS (3)
  - Rheumatoid arthritis [Unknown]
  - Arthropod bite [Recovered/Resolved with Sequelae]
  - Locked-in syndrome [Recovered/Resolved]

NARRATIVE: CASE EVENT DATE: 2007
